FAERS Safety Report 21655519 (Version 2)
Quarter: 2023Q1

REPORT INFORMATION
  Report Type: Report from Study
  Country: CL (occurrence: CL)
  Receive Date: 20221129
  Receipt Date: 20230208
  Transmission Date: 20230417
  Serious: Yes (Other)
  Sender: FDA-Public Use
  Company Number: CL-002147023-NVSC2022CL065045

PATIENT
  Age: 74 Year
  Sex: Female

DRUGS (2)
  1. KISQALI [Suspect]
     Active Substance: RIBOCICLIB
     Indication: Breast cancer
     Dosage: 600 MG, QD
     Route: 048
     Dates: start: 20180602
  2. LETROZOLE [Concomitant]
     Active Substance: LETROZOLE
     Indication: Product used for unknown indication
     Dosage: UNK (FOR 3 MONTHS)
     Route: 065

REACTIONS (6)
  - Diabetes mellitus [Unknown]
  - COVID-19 [Unknown]
  - Ill-defined disorder [Unknown]
  - Amnesia [Unknown]
  - Gastritis [Unknown]
  - Abdominal discomfort [Unknown]
